FAERS Safety Report 16008227 (Version 3)
Quarter: 2020Q1

REPORT INFORMATION
  Report Type: Spontaneous
  Country: US (occurrence: US)
  Receive Date: 20190226
  Receipt Date: 20200309
  Transmission Date: 20200409
  Serious: Yes (Death, Other)
  Sender: FDA-Public Use
  Company Number: US-ASTRAZENECA-2019SE09407

PATIENT
  Age: 25560 Day

DRUGS (27)
  1. NEXIUM [Suspect]
     Active Substance: ESOMEPRAZOLE MAGNESIUM
     Dosage: FOR MULTIPLE AND VARIOUS YEARS
     Route: 048
  2. AZITHROMYCIN ANHYDROUS. [Concomitant]
     Active Substance: AZITHROMYCIN ANHYDROUS
  3. CEFPROZIL. [Concomitant]
     Active Substance: CEFPROZIL
  4. ZOLPIDEM [Concomitant]
     Active Substance: ZOLPIDEM TARTRATE
  5. CEFPROZIL. [Concomitant]
     Active Substance: CEFPROZIL
  6. NEXIUM [Suspect]
     Active Substance: ESOMEPRAZOLE MAGNESIUM
     Route: 048
     Dates: start: 20090407
  7. ZOLPIDEM [Concomitant]
     Active Substance: ZOLPIDEM TARTRATE
  8. CLONIDINE. [Concomitant]
     Active Substance: CLONIDINE
  9. CRESTOR [Concomitant]
     Active Substance: ROSUVASTATIN CALCIUM
  10. UREA. [Concomitant]
     Active Substance: UREA
  11. PROTONIX [Suspect]
     Active Substance: PANTOPRAZOLE SODIUM
     Route: 065
     Dates: start: 20080430
  12. BUPROPION. [Concomitant]
     Active Substance: BUPROPION
  13. LOVAZA [Concomitant]
     Active Substance: OMEGA-3-ACID ETHYL ESTERS
  14. PANTOPRAZOLE [Concomitant]
     Active Substance: PANTOPRAZOLE
  15. TRICOR [Concomitant]
     Active Substance: FENOFIBRATE
  16. NOVOLOG [Concomitant]
     Active Substance: INSULIN ASPART
  17. AZITHROMYCIN ANHYDROUS. [Concomitant]
     Active Substance: AZITHROMYCIN ANHYDROUS
  18. RANITIDINE. [Concomitant]
     Active Substance: RANITIDINE
  19. FAMOTIDINE. [Concomitant]
     Active Substance: FAMOTIDINE
  20. GABAPENTIN. [Concomitant]
     Active Substance: GABAPENTIN
  21. FLOMAX [Concomitant]
     Active Substance: TAMSULOSIN HYDROCHLORIDE
  22. CEFDINIR. [Concomitant]
     Active Substance: CEFDINIR
  23. DOCUSATE SODIUM. [Concomitant]
     Active Substance: DOCUSATE SODIUM
  24. ASPIRIN. [Concomitant]
     Active Substance: ASPIRIN
  25. CLOBEX [Concomitant]
     Active Substance: CLOBETASOL PROPIONATE
  26. HUMALOG [Concomitant]
     Active Substance: INSULIN LISPRO
  27. RANITIDINE. [Concomitant]
     Active Substance: RANITIDINE

REACTIONS (7)
  - Acute kidney injury [Unknown]
  - Renal failure [Unknown]
  - Rebound acid hypersecretion [Unknown]
  - Death [Fatal]
  - Chronic kidney disease [Unknown]
  - Nephrogenic anaemia [Unknown]
  - End stage renal disease [Unknown]

NARRATIVE: CASE EVENT DATE: 20120217
